FAERS Safety Report 5774122-7 (Version None)
Quarter: 2008Q2

REPORT INFORMATION
  Report Type: 
  Country: None (occurrence: None)
  Receive Date: 20080616
  Receipt Date: 20080606
  Transmission Date: 20081010
  Serious: Yes (Death, Life-Threatening, Hospitalization)
  Sender: FDA-Public Use
  Company Number: GB-ASTRAZENECA-2008SE02204

PATIENT
  Age: 77 Year
  Sex: Male
  Weight: 72 kg

DRUGS (4)
  1. AMIAS [Suspect]
     Indication: HYPERTENSION
     Route: 048
     Dates: start: 20061027, end: 20070625
  2. AMIAS [Suspect]
     Route: 048
     Dates: start: 20070601, end: 20070801
  3. ASPIRIN [Concomitant]
     Dates: start: 19990601
  4. FENOFIBRATE [Concomitant]
     Dates: start: 20001201

REACTIONS (10)
  - ABASIA [None]
  - ANOREXIA [None]
  - CHOLESTASIS [None]
  - HEPATIC CIRRHOSIS [None]
  - HEPATITIS [None]
  - JAUNDICE [None]
  - MENTAL IMPAIRMENT [None]
  - PITTING OEDEMA [None]
  - URINE COLOUR ABNORMAL [None]
  - WEIGHT DECREASED [None]
